FAERS Safety Report 23352912 (Version 1)
Quarter: 2023Q4

REPORT INFORMATION
  Report Type: Spontaneous
  Country: US (occurrence: US)
  Receive Date: 20231230
  Receipt Date: 20231230
  Transmission Date: 20240110
  Serious: Yes (Hospitalization)
  Sender: FDA-Public Use
  Company Number: US-Accord-398148

PATIENT
  Age: 86 Year
  Sex: Male
  Weight: 77.0 kg

DRUGS (15)
  1. HYDROCHLOROTHIAZIDE [Suspect]
     Active Substance: HYDROCHLOROTHIAZIDE
     Indication: Product used for unknown indication
     Dosage: Q24H
     Route: 048
     Dates: start: 2015
  2. CAPTOPRIL [Suspect]
     Active Substance: CAPTOPRIL
     Indication: Product used for unknown indication
     Dosage: Q24H
     Route: 048
     Dates: start: 2015
  3. DOXAZOSIN MESYLATE [Suspect]
     Active Substance: DOXAZOSIN MESYLATE
     Indication: Product used for unknown indication
     Dosage: Q24H
     Route: 048
     Dates: start: 2015
  4. LERCANIDIPINE [Suspect]
     Active Substance: LERCANIDIPINE
     Indication: Product used for unknown indication
     Dosage: Q24H
     Route: 048
  5. BISOPROLOL [Concomitant]
     Active Substance: BISOPROLOL\BISOPROLOL FUMARATE
     Dates: start: 2015
  6. EDOXABAN [Concomitant]
     Active Substance: EDOXABAN
     Dates: start: 20230718
  7. ENZALUTAMIDE [Concomitant]
     Active Substance: ENZALUTAMIDE
     Indication: Prostate cancer metastatic
     Dosage: ONCE DAILY
     Route: 048
     Dates: start: 20230529, end: 20231212
  8. FLUIMUCIL [Concomitant]
     Active Substance: ACETYLCYSTEINE
     Dates: start: 20231204
  9. LACTULOSE [Concomitant]
     Active Substance: LACTULOSE
     Dates: start: 20230831
  10. OMEPRAZOLE [Concomitant]
     Active Substance: OMEPRAZOLE
     Dates: start: 2015
  11. ACETAMINOPHEN [Concomitant]
     Active Substance: ACETAMINOPHEN
     Dates: start: 2010
  12. PREDNISONE [Concomitant]
     Active Substance: PREDNISONE
     Dates: start: 2010
  13. FUROSEMIDE [Concomitant]
     Active Substance: FUROSEMIDE
     Dates: start: 2005
  14. SIMVASTATIN [Concomitant]
     Active Substance: SIMVASTATIN
     Dates: start: 2015
  15. TAMSULOSIN [Concomitant]
     Active Substance: TAMSULOSIN
     Dates: start: 2007

REACTIONS (3)
  - Upper respiratory tract infection [Not Recovered/Not Resolved]
  - Presyncope [Unknown]
  - Hypotension [Unknown]

NARRATIVE: CASE EVENT DATE: 20231212
